FAERS Safety Report 23737226 (Version 1)
Quarter: 2024Q2

REPORT INFORMATION
  Report Type: Spontaneous
  Country: JP (occurrence: JP)
  Receive Date: 20240412
  Receipt Date: 20240412
  Transmission Date: 20240716
  Serious: Yes (Other)
  Sender: FDA-Public Use
  Company Number: JP-TAIHOP-2024-003591

PATIENT
  Age: 9 Decade
  Sex: Female

DRUGS (1)
  1. LONSURF [Suspect]
     Active Substance: TIPIRACIL HYDROCHLORIDE\TRIFLURIDINE
     Indication: Gastric cancer
     Dosage: DOSE, FREQUENCY, FORM STRENGTH AND CYCLE UNKNOWN
     Route: 048

REACTIONS (2)
  - Ascites [Recovered/Resolved]
  - Neutrophil count decreased [Recovered/Resolved]
